FAERS Safety Report 5176612-7 (Version None)
Quarter: 2006Q4

REPORT INFORMATION
  Report Type: 
  Country: None (occurrence: None)
  Receive Date: 20061207
  Receipt Date: 20061127
  Transmission Date: 20070319
  Serious: Yes (Other)
  Sender: FDA-Public Use
  Company Number: 2006116410

PATIENT
  Sex: Female

DRUGS (4)
  1. LYRICA [Suspect]
     Indication: FIBROMYALGIA
     Dosage: ORAL
     Route: 048
     Dates: start: 20060425
  2. LEVOTHYROXINE SODIUM [Concomitant]
  3. FLUOXETINE [Concomitant]
  4. BUSPAR [Concomitant]

REACTIONS (6)
  - DRUG DEPENDENCE [None]
  - DRUG TOLERANCE [None]
  - IMPAIRED WORK ABILITY [None]
  - INCORRECT DOSE ADMINISTERED [None]
  - INTENTIONAL DRUG MISUSE [None]
  - SLEEP DISORDER [None]
